FAERS Safety Report 26058931 (Version 1)
Quarter: 2025Q4

REPORT INFORMATION
  Report Type: Spontaneous
  Country: US (occurrence: US)
  Receive Date: 20251118
  Receipt Date: 20251118
  Transmission Date: 20260117
  Serious: No
  Sender: COLLEGIUM PHARMACEUTICAL
  Company Number: US-COLLEGIUM PHARMACEUTICAL, INC.-20250702343

PATIENT

DRUGS (2)
  1. BELBUCA [Suspect]
     Active Substance: BUPRENORPHINE HYDROCHLORIDE
     Indication: Product used for unknown indication
     Dosage: 150 MICROGRAM, BID, EVERY 12 HOURS
     Route: 002
     Dates: start: 20240304, end: 20240917
  2. BELBUCA [Suspect]
     Active Substance: BUPRENORPHINE HYDROCHLORIDE
     Dosage: 300 MICROGRAM, BID, EVERY 12 HOURS
     Route: 002
     Dates: start: 20240917, end: 202506

REACTIONS (2)
  - Tooth discolouration [Unknown]
  - Dental caries [Unknown]
